FAERS Safety Report 13833563 (Version 1)
Quarter: 2017Q3

REPORT INFORMATION
  Report Type: Spontaneous
  Country: US (occurrence: US)
  Receive Date: 20170804
  Receipt Date: 20170804
  Transmission Date: 20171127
  Serious: No
  Sender: FDA-Public Use
  Company Number: US-BAYER-2017-148437

PATIENT
  Sex: Female

DRUGS (1)
  1. MIRALAX [Suspect]
     Active Substance: POLYETHYLENE GLYCOL 3350
     Indication: BOWEL PREPARATION
     Dosage: 238 G, UNK
     Route: 048

REACTIONS (4)
  - Product use in unapproved indication [Unknown]
  - Drug prescribing error [Recovered/Resolved with Sequelae]
  - Product use issue [Unknown]
  - Off label use [Unknown]
